FAERS Safety Report 16584135 (Version 1)
Quarter: 2019Q3

REPORT INFORMATION
  Report Type: Spontaneous
  Country: US (occurrence: US)
  Receive Date: 20190716
  Receipt Date: 20190716
  Transmission Date: 20191004
  Serious: Yes (Hospitalization)
  Sender: FDA-Public Use
  Company Number: None

PATIENT
  Age: 7 Year
  Sex: Female
  Weight: 17.5 kg

DRUGS (6)
  1. PHENOBARBITAL ORAL SOLUTION [Concomitant]
  2. LEVOCARNITINE ORAL SOLUTION [Concomitant]
     Active Substance: LEVOCARNITINE
  3. EPIDOLEX ORAL SOLUTION [Concomitant]
  4. BRIVIACT ORAL SOLUTION [Concomitant]
     Dates: end: 20190711
  5. ONFI [Suspect]
     Active Substance: CLOBAZAM
     Indication: LENNOX-GASTAUT SYNDROME
     Route: 048
     Dates: start: 20190622
  6. DEPAKENE ORAL SOLUTION [Concomitant]

REACTIONS (17)
  - Lethargy [None]
  - Asthenia [None]
  - Toxicity to various agents [None]
  - Refusal of treatment by patient [None]
  - Cough [None]
  - Anticonvulsant drug level increased [None]
  - Urinary tract infection [None]
  - Thrombocytopenia [None]
  - Mental status changes [None]
  - Seizure [None]
  - Drug interaction [None]
  - Hepatic enzyme increased [None]
  - Pneumonia [None]
  - Drooling [None]
  - Viral infection [None]
  - Bronchiolitis [None]
  - Viral upper respiratory tract infection [None]

NARRATIVE: CASE EVENT DATE: 20190711
